FAERS Safety Report 4399233-2 (Version None)
Quarter: 2004Q3

REPORT INFORMATION
  Report Type: 
  Country: None (occurrence: None)
  Receive Date: 20040712
  Receipt Date: 20040629
  Transmission Date: 20050211
  Serious: Yes (Hospitalization, Other)
  Sender: FDA-Public Use
  Company Number: 2004044191

PATIENT
  Sex: Female
  Weight: 167.8309 kg

DRUGS (16)
  1. NEURONTIN [Suspect]
     Indication: BIPOLAR DISORDER
     Dosage: 2400 MG (500 MG, QID INTERVAL: EVERY DAY), ORAL
     Route: 048
  2. NEURONTIN [Suspect]
     Indication: DIABETIC NEUROPATHY
     Dosage: 2400 MG (500 MG, QID INTERVAL: EVERY DAY), ORAL
     Route: 048
  3. NEURONTIN [Suspect]
     Indication: PAIN
     Dosage: 2400 MG (500 MG, QID INTERVAL: EVERY DAY), ORAL
     Route: 048
  4. ATARAX [Suspect]
     Indication: PRURITUS
     Dates: end: 20040101
  5. VISTARIL [Suspect]
     Indication: ANXIETY
     Dates: end: 20040101
  6. LITHIUM CARBONATE [Suspect]
     Indication: BIPOLAR DISORDER
  7. TIAGABINE HYDROCHLORIDE          (TIAGABINE HYDROCHLORIDE) [Concomitant]
  8. ESCITALOPRAM             (ESCITALOPRAM) [Concomitant]
  9. TETRABENAZINE            (TETRABENAZINE) [Concomitant]
  10. ROFECOXIB [Concomitant]
  11. ZOLPIDEM TARTRATE [Concomitant]
  12. RAMIPRIL [Concomitant]
  13. TOLTERODINE L-TARTRATE        (TOLTERODINE L-TARTRATE) [Concomitant]
  14. ESOMEPRAZOLE          (ESOMEPRAZOLE) [Concomitant]
  15. ATORVASTATIN CALCIUM [Concomitant]
  16. PIOGLITAZONE HCL [Concomitant]

REACTIONS (10)
  - ACCIDENTAL OVERDOSE [None]
  - CONFUSIONAL STATE [None]
  - CONTUSION [None]
  - CONVULSION [None]
  - DRUG INTERACTION [None]
  - DRUG TOXICITY [None]
  - FEELING JITTERY [None]
  - LOSS OF CONSCIOUSNESS [None]
  - MEMORY IMPAIRMENT [None]
  - MENTAL DISORDER [None]
